FAERS Safety Report 6404796-9 (Version None)
Quarter: 2009Q4

REPORT INFORMATION
  Report Type: 
  Country: None (occurrence: None)
  Receive Date: 20091016
  Receipt Date: 20091007
  Transmission Date: 20100525
  Serious: Yes (Hospitalization, Other)
  Sender: FDA-Public Use
  Company Number: US-CELGENEUS-163-21880-09101003

PATIENT
  Sex: Female

DRUGS (2)
  1. REVLIMID [Suspect]
     Indication: MULTIPLE MYELOMA
     Route: 048
     Dates: start: 20090601
  2. REVLIMID [Suspect]
     Route: 048
     Dates: start: 20081101

REACTIONS (3)
  - ANAEMIA [None]
  - CORONARY ARTERY OCCLUSION [None]
  - MYOCARDIAL ISCHAEMIA [None]
